FAERS Safety Report 11189500 (Version 7)
Quarter: 2016Q1

REPORT INFORMATION
  Report Type: Spontaneous
  Country: US (occurrence: US)
  Receive Date: 20150615
  Receipt Date: 20160314
  Transmission Date: 20160525
  Serious: Yes (Disabling, Other)
  Sender: FDA-Public Use
  Company Number: US-DSJP-DSU-2015-118035

PATIENT
  Sex: Female

DRUGS (1)
  1. AZOR [Suspect]
     Active Substance: AMLODIPINE BESYLATE\OLMESARTAN MEDOXOMIL
     Indication: HYPERTENSION
     Dosage: UNK
     Route: 048

REACTIONS (15)
  - Liver disorder [Unknown]
  - Palpitations [Not Recovered/Not Resolved]
  - Mobility decreased [Unknown]
  - Coma [Unknown]
  - Visual impairment [Not Recovered/Not Resolved]
  - Therapeutic response decreased [Unknown]
  - Dizziness [Unknown]
  - Functional gastrointestinal disorder [Unknown]
  - Unevaluable event [Unknown]
  - Stress [Unknown]
  - Unevaluable event [Unknown]
  - Wheelchair user [Unknown]
  - Urinary retention [Unknown]
  - Anxiety [Unknown]
  - Asthenia [Not Recovered/Not Resolved]

NARRATIVE: CASE EVENT DATE: 20140413
